FAERS Safety Report 8404929 (Version 6)
Quarter: 2015Q2

REPORT INFORMATION
  Report Type: Report from Study
  Country: CA (occurrence: CA)
  Receive Date: 20120214
  Receipt Date: 20150615
  Transmission Date: 20150821
  Serious: Yes (Other)
  Sender: FDA-Public Use
  Company Number: PHHY2011CA70041

PATIENT
  Age: 46 Year
  Sex: Female

DRUGS (2)
  1. GILENYA [Suspect]
     Active Substance: FINGOLIMOD HYDROCHLORIDE
     Dosage: 0.5 MG, QD
     Route: 048
     Dates: start: 20130315
  2. GILENYA [Suspect]
     Active Substance: FINGOLIMOD HYDROCHLORIDE
     Indication: RELAPSING-REMITTING MULTIPLE SCLEROSIS
     Dosage: 0.5 MG, DAILY
     Route: 048
     Dates: start: 20110727, end: 20121214

REACTIONS (9)
  - Alopecia [Recovering/Resolving]
  - Sinusitis [Unknown]
  - Abdominal pain upper [Recovered/Resolved]
  - Anaemia vitamin B12 deficiency [Recovering/Resolving]
  - Dyspepsia [Not Recovered/Not Resolved]
  - Uterine leiomyoma [Recovering/Resolving]
  - Nausea [Recovering/Resolving]
  - Headache [Recovered/Resolved]
  - Hypoaesthesia [Recovering/Resolving]

NARRATIVE: CASE EVENT DATE: 201109
